FAERS Safety Report 8138004 (Version 5)
Quarter: 2014Q2

REPORT INFORMATION
  Report Type: Spontaneous
  Country: GB (occurrence: GB)
  Receive Date: 20110915
  Receipt Date: 20140624
  Transmission Date: 20141212
  Serious: Yes (Other)
  Sender: FDA-Public Use
  Company Number: PHHY2011GB80245

PATIENT
  Sex: Female

DRUGS (4)
  1. PAROXETINE [Suspect]
     Dosage: MATERNAL DOSE: AT A DOSE OF 40 MG
     Route: 064
  2. DOMPERIDONE [Suspect]
     Route: 064
  3. SEROXAT [Suspect]
     Dosage: MATERNAL DOSE: 20 MG, TID
     Route: 064
     Dates: start: 1999
  4. SEROXAT [Suspect]
     Dosage: UNK

REACTIONS (2)
  - Premature baby [Unknown]
  - Foetal exposure during pregnancy [Unknown]
